FAERS Safety Report 9971321 (Version 1)
Quarter: 2014Q1

REPORT INFORMATION
  Report Type: Spontaneous
  Country: US (occurrence: None)
  Receive Date: 20140305
  Receipt Date: 20140305
  Transmission Date: 20141002
  Serious: Yes (Disabling)
  Sender: FDA-Public Use
  Company Number: None

PATIENT
  Age: 48 Year
  Sex: Male
  Weight: 65.77 kg

DRUGS (2)
  1. CELEXA [Suspect]
     Indication: DEPRESSION
  2. LEXAPRO [Suspect]

REACTIONS (3)
  - Pain [None]
  - Peyronie^s disease [None]
  - Neoplasm malignant [None]
